FAERS Safety Report 7559561-6 (Version None)
Quarter: 2011Q2

REPORT INFORMATION
  Report Type: 
  Country: None (occurrence: None)
  Receive Date: 20110617
  Receipt Date: 20110617
  Transmission Date: 20111010
  Serious: Yes (Other)
  Sender: FDA-Public Use
  Company Number: None

PATIENT
  Age: 35 Year
  Sex: Female
  Weight: 56.4 kg

DRUGS (2)
  1. PRISTIQ [Suspect]
     Indication: DEPRESSION
     Dosage: 50MG ONCE A DAY ORAL (047)
     Route: 048
     Dates: start: 20110101, end: 20110610
  2. PRISTIQ [Suspect]
     Indication: ANXIETY
     Dosage: 50MG ONCE A DAY ORAL (047)
     Route: 048
     Dates: start: 20110101, end: 20110610

REACTIONS (1)
  - ALOPECIA [None]
